FAERS Safety Report 7532485-6 (Version None)
Quarter: 2011Q2

REPORT INFORMATION
  Report Type: 
  Country: None (occurrence: None)
  Receive Date: 20110607
  Receipt Date: 20110607
  Transmission Date: 20111010
  Serious: Yes (Other)
  Sender: FDA-Public Use
  Company Number: None

PATIENT
  Age: 38 Year
  Sex: Male
  Weight: 70.3075 kg

DRUGS (1)
  1. DORYX [Suspect]
     Indication: ROSACEA
     Dosage: 1 TABLET DAILY PO
     Route: 048
     Dates: start: 20110205, end: 20110601

REACTIONS (4)
  - FLATULENCE [None]
  - WEIGHT INCREASED [None]
  - GASTROOESOPHAGEAL REFLUX DISEASE [None]
  - ABDOMINAL DISTENSION [None]
